FAERS Safety Report 9518903 (Version 5)
Quarter: 2014Q1

REPORT INFORMATION
  Report Type: Spontaneous
  Country: FR (occurrence: FR)
  Receive Date: 20130912
  Receipt Date: 20140107
  Transmission Date: 20141002
  Serious: Yes (Death, Hospitalization)
  Sender: FDA-Public Use
  Company Number: FR-B.I. PHARMACEUTICALS,INC./RIDGEFIELD-2013-FF-02236FF

PATIENT
  Age: 87 Year
  Sex: Female

DRUGS (6)
  1. PRADAXA [Suspect]
     Indication: ATRIAL FIBRILLATION
     Dosage: 220 MG
     Route: 048
     Dates: end: 20130824
  2. PRADAXA [Suspect]
     Indication: ARRHYTHMIA
  3. PERINDOPRIL [Concomitant]
     Indication: HYPERTENSION
     Route: 048
  4. HEMIGOXINE [Concomitant]
     Indication: ATRIAL FIBRILLATION
     Route: 048
  5. LYRICA [Concomitant]
     Dosage: 150-0-200
     Route: 048
  6. FUROSEMIDE [Concomitant]
     Indication: HYPERTENSION
     Dosage: 40 MG
     Route: 048

REACTIONS (4)
  - Cerebral haematoma [Fatal]
  - Depressed level of consciousness [Fatal]
  - Pneumonia aspiration [Fatal]
  - Fall [Unknown]
